FAERS Safety Report 5836520-2 (Version None)
Quarter: 2008Q3

REPORT INFORMATION
  Report Type: 
  Country: None (occurrence: None)
  Receive Date: 20080729
  Receipt Date: 20080729
  Transmission Date: 20090109
  Serious: Yes (Disabling)
  Sender: FDA-Public Use
  Company Number: None

PATIENT
  Age: 4 Year
  Sex: Female
  Weight: 14.5151 kg

DRUGS (1)
  1. AVEENO SUNBLOCK SPRAY JOHNSON + JOHNSON [Suspect]
     Indication: PHOTOSENSITIVITY REACTION
     Dosage: AVERAGE TWICE DAILY TOP
     Route: 061
     Dates: start: 20080713, end: 20080715

REACTIONS (9)
  - ERYTHEMA [None]
  - PHARMACEUTICAL PRODUCT COMPLAINT [None]
  - PIGMENTATION DISORDER [None]
  - RASH [None]
  - RASH MACULAR [None]
  - SCAR [None]
  - SKIN DISCOLOURATION [None]
  - SKIN EXFOLIATION [None]
  - THERMAL BURN [None]
